FAERS Safety Report 11727435 (Version 1)
Quarter: 2015Q4

REPORT INFORMATION
  Report Type: Spontaneous
  Country: CH (occurrence: CH)
  Receive Date: 20151112
  Receipt Date: 20151112
  Transmission Date: 20160304
  Serious: Yes (Other)
  Sender: FDA-Public Use
  Company Number: CH-JNJFOC-20151106379

PATIENT
  Age: 3 Decade
  Sex: Female

DRUGS (2)
  1. SIMPONI [Suspect]
     Active Substance: GOLIMUMAB
     Indication: CROHN^S DISEASE
     Route: 058
     Dates: start: 201304
  2. SIMPONI [Suspect]
     Active Substance: GOLIMUMAB
     Indication: SPINAL OSTEOARTHRITIS
     Route: 058
     Dates: start: 201304

REACTIONS (4)
  - Bacterial infection [Recovered/Resolved]
  - Impetigo [Recovered/Resolved]
  - Off label use [Unknown]
  - Product use issue [Unknown]
